FAERS Safety Report 23857099 (Version 2)
Quarter: 2024Q2

REPORT INFORMATION
  Report Type: Spontaneous
  Country: US (occurrence: US)
  Receive Date: 20240515
  Receipt Date: 20240617
  Transmission Date: 20240716
  Serious: Yes (Other)
  Sender: FDA-Public Use
  Company Number: US-BAYER-2024A066711

PATIENT
  Age: 24 Year
  Sex: Female

DRUGS (1)
  1. SKYLA [Suspect]
     Active Substance: LEVONORGESTREL
     Indication: Contraception
     Dosage: 14?G/DAY
     Route: 015
     Dates: end: 20240510

REACTIONS (4)
  - Pregnancy with contraceptive device [None]
  - Haemorrhage in pregnancy [Not Recovered/Not Resolved]
  - Drug ineffective [None]
  - Abdominal pain lower [None]

NARRATIVE: CASE EVENT DATE: 20240429
